FAERS Safety Report 5857843-7 (Version None)
Quarter: 2008Q3

REPORT INFORMATION
  Report Type: 
  Country: None (occurrence: None)
  Receive Date: 20080826
  Receipt Date: 20080815
  Transmission Date: 20090109
  Serious: Yes (Death, Hospitalization, Other)
  Sender: FDA-Public Use
  Company Number: US-BAXTER-2008BH008750

PATIENT
  Age: 73 Year
  Sex: Male

DRUGS (2)
  1. DIANEAL [Suspect]
     Indication: PERITONEAL DIALYSIS
     Dosage: DOSE UNIT:UNKNOWN
     Route: 033
  2. DIANEAL [Suspect]
     Indication: PERITONEAL DIALYSIS
     Dosage: DOSE UNIT:UNKNOWN
     Route: 033

REACTIONS (7)
  - CLOSTRIDIAL INFECTION [None]
  - DEATH [None]
  - DEEP VEIN THROMBOSIS [None]
  - HYPONATRAEMIA [None]
  - HYPOTENSION [None]
  - PNEUMONIA ASPIRATION [None]
  - SEPSIS [None]
